FAERS Safety Report 12481043 (Version 4)
Quarter: 2016Q3

REPORT INFORMATION
  Report Type: Report from Study
  Country: JP (occurrence: JP)
  Receive Date: 20160620
  Receipt Date: 20160720
  Transmission Date: 20161109
  Serious: Yes (Other)
  Sender: FDA-Public Use
  Company Number: JP-JNJFOC-20160611420

PATIENT
  Age: 48 Year
  Sex: Female
  Weight: 49 kg

DRUGS (26)
  1. XEPLION [Suspect]
     Active Substance: PALIPERIDONE PALMITATE
     Indication: SCHIZOPHRENIA
     Dosage: RIGHT GLUTEAL MUSCLE
     Route: 030
     Dates: start: 20160308, end: 20160308
  2. ATARAX [Concomitant]
     Active Substance: HYDROXYZINE\HYDROXYZINE HYDROCHLORIDE
     Indication: SCHIZOPHRENIA
     Route: 048
     Dates: start: 20140830, end: 20150612
  3. CERCINE [Concomitant]
     Active Substance: DIAZEPAM
     Indication: EPILEPSY
     Route: 048
     Dates: start: 20160201
  4. XEPLION [Suspect]
     Active Substance: PALIPERIDONE PALMITATE
     Indication: SCHIZOPHRENIA
     Dosage: LEFT GLUTEAL MUSCLE
     Route: 030
     Dates: start: 20160608
  5. MAGLAX [Concomitant]
     Active Substance: MAGNESIUM OXIDE
     Indication: CONSTIPATION
     Route: 048
     Dates: start: 20160307, end: 20160410
  6. DEPAKENE [Concomitant]
     Active Substance: VALPROIC ACID
     Indication: EPILEPSY
     Route: 048
  7. XEPLION [Suspect]
     Active Substance: PALIPERIDONE PALMITATE
     Indication: SCHIZOPHRENIA
     Dosage: RIGHT DELTOID MUSCLE
     Route: 030
     Dates: start: 20150808, end: 20150808
  8. MAGLAX [Concomitant]
     Active Substance: MAGNESIUM OXIDE
     Indication: CONSTIPATION
     Route: 048
     Dates: start: 20160411
  9. XEPLION [Suspect]
     Active Substance: PALIPERIDONE PALMITATE
     Indication: SCHIZOPHRENIA
     Dosage: RIGHT GLUTEAL MUSCLE
     Route: 030
     Dates: start: 20160508, end: 20160508
  10. XEPLION [Suspect]
     Active Substance: PALIPERIDONE PALMITATE
     Indication: SCHIZOPHRENIA
     Dosage: LEFT DELTOID MUSCLE
     Route: 030
     Dates: start: 20150613, end: 20150613
  11. XEPLION [Suspect]
     Active Substance: PALIPERIDONE PALMITATE
     Indication: SCHIZOPHRENIA
     Dosage: LEFT GLUTEAL MUSCLE
     Route: 030
     Dates: start: 20151008, end: 20151008
  12. MAGLAX [Concomitant]
     Active Substance: MAGNESIUM OXIDE
     Indication: CONSTIPATION
     Route: 048
     Dates: end: 20160306
  13. XEPLION [Suspect]
     Active Substance: PALIPERIDONE PALMITATE
     Indication: SCHIZOPHRENIA
     Dosage: RIGHT GLUTEAL MUSCLE
     Route: 030
     Dates: start: 20160108, end: 20160108
  14. XEPLION [Suspect]
     Active Substance: PALIPERIDONE PALMITATE
     Indication: SCHIZOPHRENIA
     Dosage: RIGHT DELTOID MUSCLE
     Route: 030
     Dates: start: 20150606, end: 20150606
  15. ZYPREXA [Suspect]
     Active Substance: OLANZAPINE
     Indication: SCHIZOPHRENIA
     Route: 048
     Dates: end: 20150628
  16. XEPLION [Suspect]
     Active Substance: PALIPERIDONE PALMITATE
     Indication: SCHIZOPHRENIA
     Dosage: RIGHT GLUTEAL MUSCLE
     Route: 030
     Dates: start: 20151108, end: 20151108
  17. XEPLION [Suspect]
     Active Substance: PALIPERIDONE PALMITATE
     Indication: SCHIZOPHRENIA
     Dosage: LEFT GLUTEAL MUSCLE
     Route: 030
     Dates: start: 20151208, end: 20151208
  18. XEPLION [Suspect]
     Active Substance: PALIPERIDONE PALMITATE
     Indication: SCHIZOPHRENIA
     Dosage: LEFT GLUTEAL MUSCLE
     Route: 030
     Dates: start: 20160208, end: 20160208
  19. XEPLION [Suspect]
     Active Substance: PALIPERIDONE PALMITATE
     Indication: SCHIZOPHRENIA
     Dosage: RIGHT GLUTEAL MUSCLE
     Route: 030
     Dates: start: 20150908, end: 20150908
  20. E KEPPRA [Concomitant]
     Active Substance: LEVETIRACETAM
     Indication: EPILEPSY
     Route: 048
     Dates: end: 20150831
  21. CERCINE [Concomitant]
     Active Substance: DIAZEPAM
     Indication: EPILEPSY
     Route: 048
     Dates: start: 20151228, end: 20160131
  22. TEGRETOL [Concomitant]
     Active Substance: CARBAMAZEPINE
     Indication: EPILEPSY
     Route: 048
  23. BROTIZOLAM [Concomitant]
     Active Substance: BROTIZOLAM
     Indication: SCHIZOPHRENIA
     Route: 048
     Dates: end: 20160131
  24. XEPLION [Suspect]
     Active Substance: PALIPERIDONE PALMITATE
     Indication: SCHIZOPHRENIA
     Dosage: LEFT GLUTEAL MUSCLE
     Route: 030
     Dates: start: 20160408, end: 20160408
  25. XEPLION [Suspect]
     Active Substance: PALIPERIDONE PALMITATE
     Indication: SCHIZOPHRENIA
     Dosage: RIGHT DELTOID MUSCLE
     Route: 030
     Dates: start: 20150711, end: 20150711
  26. LASIX [Concomitant]
     Active Substance: FUROSEMIDE
     Indication: OEDEMA PERIPHERAL
     Route: 048
     Dates: start: 20160126, end: 20160221

REACTIONS (4)
  - Epilepsy [Recovering/Resolving]
  - Constipation [Not Recovered/Not Resolved]
  - Weight increased [Not Recovered/Not Resolved]
  - Oedema peripheral [Recovering/Resolving]

NARRATIVE: CASE EVENT DATE: 20151108
